FAERS Safety Report 10733172 (Version 1)
Quarter: 2015Q1

REPORT INFORMATION
  Report Type: Spontaneous
  Country: DE (occurrence: None)
  Receive Date: 20150120
  Receipt Date: 20150120
  Transmission Date: 20150721
  Serious: Yes (Other)
  Sender: FDA-Public Use
  Company Number: FK201500215

PATIENT
  Age: 72 Year
  Sex: Male

DRUGS (2)
  1. GEMCITABINE (MANUFACTURER UNKNOWN) (GEMCITABINE) (GEMCITABINE) [Suspect]
     Active Substance: GEMCITABINE HYDROCHLORIDE
     Indication: PANCREATIC CARCINOMA
     Dosage: 1000 MG/M2 ON DAYS 1, 8, AND 15 OF A 28 DAY CYCLE
  2. NAB PACLITAXEL [Suspect]
     Active Substance: PACLITAXEL
     Indication: PANCREATIC CARCINOMA
     Dosage: 125 MG/M2 ON DAYS, 1, 8 AND 15 OF A 28 DAY CYCLE

REACTIONS (11)
  - Fatigue [None]
  - Neutropenia [None]
  - Thrombocytopenia [None]
  - Blood glucose fluctuation [None]
  - Cholangitis acute [None]
  - Diarrhoea [None]
  - Haematotoxicity [None]
  - Polyneuropathy [None]
  - Anaemia [None]
  - Localised infection [None]
  - Seborrhoeic dermatitis [None]
